FAERS Safety Report 5128063-9 (Version None)
Quarter: 2006Q4

REPORT INFORMATION
  Report Type: 
  Country: None (occurrence: None)
  Receive Date: 20061010
  Receipt Date: 20061002
  Transmission Date: 20070319
  Serious: Yes (Life-Threatening, Hospitalization)
  Sender: FDA-Public Use
  Company Number: 2006-148515-NL

PATIENT
  Age: 64 Year
  Sex: Male

DRUGS (8)
  1. DEXAMETHASONE TAB [Suspect]
     Indication: MULTIPLE MYELOMA
     Dosage: ORAL
     Route: 048
     Dates: start: 20030807, end: 20060821
  2. THALIDOMIDE [Suspect]
     Indication: MULTIPLE MYELOMA
     Dosage: ORAL
     Route: 048
     Dates: start: 20030807, end: 20060825
  3. AMLODIPINE [Concomitant]
  4. CETIRIZINE HCL [Concomitant]
  5. CO-AMILOFRUSE [Concomitant]
  6. ACETAMINOPHEN W/ CODEINE [Concomitant]
  7. CYCLOPHOSPHAMIDE [Concomitant]
  8. LANSOPRAZOLE [Concomitant]

REACTIONS (1)
  - TOXIC EPIDERMAL NECROLYSIS [None]
